FAERS Safety Report 5108155-0 (Version None)
Quarter: 2006Q3

REPORT INFORMATION
  Report Type: 
  Country: None (occurrence: None)
  Receive Date: 20060919
  Receipt Date: 20060912
  Transmission Date: 20061208
  Serious: Yes (Hospitalization)
  Sender: FDA-Public Use
  Company Number: ES-GLAXOSMITHKLINE-B0438492A

PATIENT
  Age: 14 Year
  Sex: Female
  Weight: 57 kg

DRUGS (4)
  1. LAMICTAL [Suspect]
     Dosage: 50MG PER DAY
     Route: 048
     Dates: start: 20060630, end: 20060708
  2. DEPAKENE [Suspect]
     Dosage: 500MG TWICE PER DAY
     Route: 048
     Dates: start: 20040101
  3. AMOXICILLIN [Concomitant]
     Indication: UPPER RESPIRATORY TRACT INFECTION
     Dates: start: 20060708
  4. MAGNESIUM LACTATE [Concomitant]
     Dates: start: 20050101

REACTIONS (6)
  - HYPERSENSITIVITY [None]
  - LYMPHADENOPATHY [None]
  - PRURITUS [None]
  - PYREXIA [None]
  - RASH MACULO-PAPULAR [None]
  - TONGUE DISORDER [None]
